FAERS Safety Report 7529353-2 (Version None)
Quarter: 2011Q2

REPORT INFORMATION
  Report Type: 
  Country: None (occurrence: None)
  Receive Date: 20110607
  Receipt Date: 20110523
  Transmission Date: 20111010
  Serious: Yes (Other)
  Sender: FDA-Public Use
  Company Number: TR-ROCHE-780743

PATIENT
  Age: 5 Year
  Sex: Male

DRUGS (1)
  1. MYCOPHENOLATE MEFETIL [Suspect]
     Indication: AUTOIMMUNE LYMPHOPROLIFERATIVE SYNDROME
     Route: 065

REACTIONS (1)
  - BENIGN INTRACRANIAL HYPERTENSION [None]
